FAERS Safety Report 24273848 (Version 1)
Quarter: 2024Q3

REPORT INFORMATION
  Report Type: Spontaneous
  Country: US (occurrence: US)
  Receive Date: 20240902
  Receipt Date: 20240902
  Transmission Date: 20241017
  Serious: No
  Sender: RECKITT BENCKISER
  Company Number: US-PROD-AS2-212756134-RB-087151-2024

PATIENT
  Age: 74 Year
  Sex: Female
  Weight: 97.73 kg

DRUGS (3)
  1. MUCINEX [Suspect]
     Active Substance: GUAIFENESIN
     Indication: Nasopharyngitis
     Dosage: UNKNOWN
     Route: 048
  2. MUCINEX [Suspect]
     Active Substance: GUAIFENESIN
     Indication: Upper-airway cough syndrome
  3. MUCINEX [Suspect]
     Active Substance: GUAIFENESIN
     Indication: Sinusitis

REACTIONS (3)
  - Constipation [Not Recovered/Not Resolved]
  - Product use in unapproved indication [Unknown]
  - Incorrect product administration duration [Unknown]
